FAERS Safety Report 11071435 (Version 3)
Quarter: 2016Q4

REPORT INFORMATION
  Report Type: Spontaneous
  Country: US (occurrence: US)
  Receive Date: 20150428
  Receipt Date: 20161221
  Transmission Date: 20170206
  Serious: No
  Sender: FDA-Public Use
  Company Number: US-PFIZER INC-2015139294

PATIENT
  Age: 64 Year
  Sex: Female

DRUGS (17)
  1. COLACE [Concomitant]
     Active Substance: DOCUSATE SODIUM
     Dosage: 100 MG, 2X/DAY
     Route: 048
     Dates: start: 20070509
  2. FUROSEMIDE. [Concomitant]
     Active Substance: FUROSEMIDE
     Dosage: 40 MG, DAILY
     Route: 048
     Dates: start: 20160812
  3. XANAX [Concomitant]
     Active Substance: ALPRAZOLAM
     Indication: ANXIETY
     Dosage: (5 TIMES PER DAY PRN; AS NEEDED)1 MG, AS NEEDED
     Route: 048
     Dates: start: 20161104
  4. ASPIRIN. [Concomitant]
     Active Substance: ASPIRIN
     Indication: PAIN
     Dosage: 325 MG, AS NEEDED (Q6H, AS NEEDED)
     Dates: start: 20140224
  5. CARISOPRODOL. [Concomitant]
     Active Substance: CARISOPRODOL
     Indication: MUSCLE SPASMS
     Dosage: 350 MG, 4X/DAY
     Route: 048
     Dates: start: 20160208
  6. OXYCODONE [Concomitant]
     Active Substance: OXYCODONE
     Indication: BREAKTHROUGH PAIN
     Dosage: 10 MG, UNK (1 TAB PO 3-4 TIMES PER DAY)
     Route: 048
     Dates: start: 20140825
  7. POTASSIUM 99 [Concomitant]
     Dosage: 1 DF, DAILY
     Route: 048
     Dates: start: 20120703
  8. LYRICA [Suspect]
     Active Substance: PREGABALIN
     Indication: PERONEAL NERVE PALSY
     Dosage: 100 MG, 3X/DAY
  9. LYRICA [Suspect]
     Active Substance: PREGABALIN
     Dosage: 100 MG, 1X/DAY (ONE PILL A DAY)
  10. TYLENOL EXTRA STRENGTH [Concomitant]
     Active Substance: ACETAMINOPHEN
     Dosage: 1000 MG, 4X/DAY (Q6H)
     Route: 048
     Dates: start: 20140825
  11. ACIDOPHILUS [Concomitant]
     Active Substance: LACTOBACILLUS ACIDOPHILUS
     Dosage: 2 DF, 1X/DAY (2 TAB, PO, QAM)
     Route: 048
     Dates: start: 20130508
  12. LYRICA [Suspect]
     Active Substance: PREGABALIN
     Dosage: 50 MG, 3X/DAY
     Route: 048
  13. CARISOPRODOL. [Concomitant]
     Active Substance: CARISOPRODOL
     Indication: MYALGIA
     Dosage: 350 MG, AS NEEDED (PRN)
     Route: 048
     Dates: start: 20161121
  14. CHELATED MAGNESIUM [Concomitant]
     Dosage: 500 MG, 1X/DAY
     Route: 048
     Dates: start: 20140224
  15. MS CONTIN [Concomitant]
     Active Substance: MORPHINE SULFATE
     Dosage: 30 MG, 2X/DAY (30 MG/12 HR, 1 TAB, PO, Q12H)
     Route: 048
     Dates: start: 20140825
  16. LYRICA [Suspect]
     Active Substance: PREGABALIN
     Indication: NEUROPATHY PERIPHERAL
     Dosage: UNK
     Dates: start: 2005
  17. MECLIZINE [Concomitant]
     Active Substance: MECLIZINE HYDROCHLORIDE
     Dosage: 25 MG, 3X/DAY
     Route: 048
     Dates: start: 20131011

REACTIONS (5)
  - Skin discolouration [Unknown]
  - Effusion [Unknown]
  - Muscle spasms [Unknown]
  - Weight increased [Unknown]
  - Intentional product use issue [Unknown]

NARRATIVE: CASE EVENT DATE: 2005
